FAERS Safety Report 6626905-9 (Version None)
Quarter: 2010Q1

REPORT INFORMATION
  Report Type: 
  Country: None (occurrence: None)
  Receive Date: 20100311
  Receipt Date: 20100301
  Transmission Date: 20100710
  Serious: Yes (Other)
  Sender: FDA-Public Use
  Company Number: US-BAYER-201015175NA

PATIENT
  Age: 34 Year
  Sex: Female

DRUGS (1)
  1. MIRENA [Suspect]
     Indication: MENORRHAGIA
     Dosage: FREQUENCY: CONTINUOUS
     Route: 015
     Dates: start: 20091120

REACTIONS (7)
  - ABDOMINAL DISTENSION [None]
  - ARTHRALGIA [None]
  - DIZZINESS [None]
  - DYSMENORRHOEA [None]
  - MIGRAINE WITH AURA [None]
  - NAUSEA [None]
  - VASCULITIS [None]
